FAERS Safety Report 4741675-7 (Version None)
Quarter: 2005Q3

REPORT INFORMATION
  Report Type: 
  Country: None (occurrence: None)
  Receive Date: 20050804
  Receipt Date: 20050110
  Transmission Date: 20060218
  Serious: Yes (Other)
  Sender: FDA-Public Use
  Company Number: US-JNJFOC-20040600088

PATIENT
  Age: 10 Year
  Sex: Female

DRUGS (3)
  1. CHILDREN'S MOTRIN [Suspect]
     Indication: DRUG USE FOR UNKNOWN INDICATION
     Dates: start: 20040323, end: 20040323
  2. NORVASC [Concomitant]
  3. LABETOLOL [Concomitant]

REACTIONS (1)
  - HYPERSENSITIVITY [None]
